FAERS Safety Report 5259971-6 (Version None)
Quarter: 2007Q1

REPORT INFORMATION
  Report Type: 
  Country: None (occurrence: None)
  Receive Date: 20070309
  Receipt Date: 20070228
  Transmission Date: 20070707
  Serious: No
  Sender: FDA-Public Use
  Company Number: 2006UW07911

PATIENT
  Age: 520 Month
  Sex: Female
  Weight: 136.4 kg

DRUGS (5)
  1. SEROQUEL [Suspect]
     Indication: MENTAL DISORDER
     Route: 048
     Dates: start: 20010101, end: 20060301
  2. ABILIFY [Concomitant]
     Dates: start: 20060101
  3. ZYPREXA [Concomitant]
     Dates: start: 20030101
  4. BUSPAR [Concomitant]
     Dates: start: 20030101
  5. FLUOXETINE [Concomitant]
     Dates: start: 20060101

REACTIONS (1)
  - DIABETES MELLITUS [None]
